FAERS Safety Report 7726867-7 (Version None)
Quarter: 2011Q3

REPORT INFORMATION
  Report Type: 
  Country: None (occurrence: None)
  Receive Date: 20110902
  Receipt Date: 20110831
  Transmission Date: 20111222
  Serious: Yes (Life-Threatening, Other)
  Sender: FDA-Public Use
  Company Number: GB-ABBOTT-11P-167-0850385-00

PATIENT
  Sex: Male

DRUGS (1)
  1. HUMIRA [Suspect]
     Indication: PSORIASIS
     Route: 058
     Dates: start: 20090201, end: 20101001

REACTIONS (7)
  - AMNESIA [None]
  - CONFUSIONAL STATE [None]
  - HEADACHE [None]
  - BRAIN ABSCESS [None]
  - MOBILITY DECREASED [None]
  - POST PROCEDURAL INFECTION [None]
  - EPILEPSY [None]
